FAERS Safety Report 16353436 (Version 1)
Quarter: 2019Q2

REPORT INFORMATION
  Report Type: Spontaneous
  Country: US (occurrence: US)
  Receive Date: 20190524
  Receipt Date: 20190524
  Transmission Date: 20190711
  Serious: No
  Sender: FDA-Public Use
  Company Number: US-TEVA-2019-US-1051683

PATIENT
  Sex: Female

DRUGS (1)
  1. BUPROPION EXTENDED RELEASE XL [Suspect]
     Active Substance: BUPROPION
     Dates: start: 201902

REACTIONS (1)
  - Blood urea increased [Unknown]

NARRATIVE: CASE EVENT DATE: 201902
